FAERS Safety Report 6204575-1 (Version None)
Quarter: 2009Q2

REPORT INFORMATION
  Report Type: 
  Country: None (occurrence: None)
  Receive Date: 20090522
  Receipt Date: 20090514
  Transmission Date: 20091009
  Serious: Yes (Death)
  Sender: FDA-Public Use
  Company Number: WAES 0905KOR00024

PATIENT
  Age: 71 Year
  Sex: Male

DRUGS (4)
  1. INVANZ [Suspect]
     Indication: URINARY TRACT INFECTION
     Dosage: 1 0.5 GM/DAILY, IV
     Route: 042
     Dates: start: 20090422, end: 20090425
  2. FLUCONAZOLE [Concomitant]
  3. LINEZOLID [Concomitant]
  4. MEROPENEM [Concomitant]

REACTIONS (1)
  - PNEUMONIA [None]
